FAERS Safety Report 8980378 (Version 1)
Quarter: 2012Q4

REPORT INFORMATION
  Report Type: 
  Country: JP (occurrence: JP)
  Receive Date: 20121221
  Receipt Date: 20121221
  Transmission Date: 20130627
  Serious: Yes (Other)
  Sender: FDA-Public Use
  Company Number: PHHY2012JP117594

PATIENT
  Age: 44 Year
  Sex: Male

DRUGS (2)
  1. AMIODARONE [Suspect]
  2. PRADAXA [Interacting]
     Dosage: 110 mg, BID

REACTIONS (1)
  - Haematoma [Recovered/Resolved]
